FAERS Safety Report 6661551-2 (Version None)
Quarter: 2010Q1

REPORT INFORMATION
  Report Type: 
  Country: None (occurrence: None)
  Receive Date: 20100331
  Receipt Date: 20100319
  Transmission Date: 20100710
  Serious: Yes (Other)
  Sender: FDA-Public Use
  Company Number: US-PFIZER INC-2010025807

PATIENT
  Sex: Female
  Weight: 72.562 kg

DRUGS (5)
  1. GABAPENTIN [Suspect]
     Indication: NEURALGIA
     Dosage: 300 MG, 1X/DAY
     Dates: start: 20081210
  2. GABAPENTIN [Suspect]
     Indication: PAIN
  3. ROBAXIN [Concomitant]
     Dosage: 500 MG, 3X/DAY
  4. ELAVIL [Concomitant]
     Dosage: 25 MG/DAY AT BEDTIME
  5. VICODIN [Concomitant]
     Indication: PAIN
     Dosage: 5/500 EVERY 6 HOURS AS NEEDED

REACTIONS (4)
  - ASTHENOPIA [None]
  - NEURALGIA [None]
  - VISION BLURRED [None]
  - VISUAL IMPAIRMENT [None]
